FAERS Safety Report 8821383 (Version 1)
Quarter: 2012Q4

REPORT INFORMATION
  Report Type: 
  Country: GB (occurrence: GB)
  Receive Date: 20121002
  Receipt Date: 20121002
  Transmission Date: 20130627
  Serious: Yes (Other)
  Sender: FDA-Public Use
  Company Number: GB-ABBOTT-12P-167-0989964-00

PATIENT
  Age: 24 Year
  Sex: Male

DRUGS (3)
  1. DEPAKOTE [Suspect]
     Indication: PRODUCT USED FOR UNKNOWN INDICATION
     Route: 065
  2. SEROQUEL [Suspect]
     Indication: AUTISM
     Dosage: 100 mg daily
     Route: 048
  3. SEROQUEL [Suspect]
     Indication: BIPOLAR DISORDER

REACTIONS (4)
  - Drug interaction [Unknown]
  - Suicidal ideation [Unknown]
  - Aggression [Unknown]
  - Irritability [Unknown]
